FAERS Safety Report 14578817 (Version 1)
Quarter: 2018Q1

REPORT INFORMATION
  Report Type: Spontaneous
  Country: US (occurrence: US)
  Receive Date: 20180227
  Receipt Date: 20180227
  Transmission Date: 20180509
  Serious: Yes (Other)
  Sender: FDA-Public Use
  Company Number: US-SA-2018SA048564

PATIENT
  Age: 58 Year
  Sex: Female

DRUGS (2)
  1. LANTUS SOLOSTAR [Suspect]
     Active Substance: INSULIN GLARGINE
     Indication: TYPE 2 DIABETES MELLITUS
     Dosage: DOSE:55 UNIT(S)
     Route: 051
     Dates: start: 2016
  2. SOLOSTAR [Suspect]
     Active Substance: DEVICE
     Indication: TYPE 2 DIABETES MELLITUS
     Dates: start: 2016

REACTIONS (8)
  - Cough [Unknown]
  - Wheezing [Unknown]
  - Influenza [Unknown]
  - Haemophilus infection [Unknown]
  - Dyspnoea [Unknown]
  - Product use issue [Unknown]
  - Middle ear effusion [Unknown]
  - Hypoacusis [Unknown]

NARRATIVE: CASE EVENT DATE: 201801
